FAERS Safety Report 4437257-7 (Version None)
Quarter: 2004Q3

REPORT INFORMATION
  Report Type: 
  Country: None (occurrence: None)
  Receive Date: 20040728
  Receipt Date: 20040512
  Transmission Date: 20050211
  Serious: No
  Sender: FDA-Public Use
  Company Number: WAES 0405USA00948

PATIENT
  Sex: 0

DRUGS (1)
  1. EMEND [Suspect]
     Dosage: 125 MG/1X/PO; SEE IMAGE
     Route: 048

REACTIONS (1)
  - VOMITING [None]
